FAERS Safety Report 7680047-2 (Version None)
Quarter: 2011Q3

REPORT INFORMATION
  Report Type: 
  Country: None (occurrence: None)
  Receive Date: 20110805
  Receipt Date: 20110801
  Transmission Date: 20111222
  Serious: Yes (Hospitalization, Other)
  Sender: FDA-Public Use
  Company Number: WAES 1103USA02616

PATIENT
  Age: 41 Year
  Sex: Female
  Weight: 54.4316 kg

DRUGS (11)
  1. NORCO [Concomitant]
  2. FENTANYL [Concomitant]
  3. CELEXA [Concomitant]
  4. KEPPRA [Concomitant]
  5. COLACE [Concomitant]
  6. METFORMIN HCL [Concomitant]
  7. DECADRON [Suspect]
     Indication: PRODUCT USED FOR UNKNOWN INDICATION
     Dosage: 2 MG/DAILY/PO
     Route: 048
     Dates: start: 20101019
  8. NEXIUM [Concomitant]
  9. ARIXTRA [Concomitant]
  10. BACTRIM [Concomitant]
  11. LANTUS [Concomitant]

REACTIONS (7)
  - HYPOAESTHESIA [None]
  - EXTRADURAL ABSCESS [None]
  - METASTASES TO CENTRAL NERVOUS SYSTEM [None]
  - NEOPLASM MALIGNANT [None]
  - LEUKOENCEPHALOPATHY [None]
  - SPINAL CORD COMPRESSION [None]
  - SPINAL COMPRESSION FRACTURE [None]
